FAERS Safety Report 12080054 (Version 8)
Quarter: 2021Q4

REPORT INFORMATION
  Report Type: Report from Study
  Country: CO (occurrence: CO)
  Receive Date: 20160216
  Receipt Date: 20211115
  Transmission Date: 20220303
  Serious: Yes (Other)
  Sender: FDA-Public Use
  Company Number: PHHY2016CO019996

PATIENT
  Age: 54 Year
  Sex: Male
  Weight: 62 kg

DRUGS (8)
  1. TASIGNA [Suspect]
     Active Substance: NILOTINIB
     Indication: Chronic myeloid leukaemia
     Dosage: 2 DF, Q12H (STRENGTH 200 MG)
     Route: 048
     Dates: start: 20140613
  2. TASIGNA [Suspect]
     Active Substance: NILOTINIB
     Dosage: 600 MG, QD (STRENGTH 200 MG)
     Route: 048
  3. TASIGNA [Suspect]
     Active Substance: NILOTINIB
     Dosage: 2 DF, Q12H (STRENGTH 150 MG)
     Route: 048
  4. TASIGNA [Suspect]
     Active Substance: NILOTINIB
     Dosage: 200 MG, QD (4 OF 200 MG)
     Route: 048
  5. TASIGNA [Suspect]
     Active Substance: NILOTINIB
     Dosage: 2 DF, Q12H (STRENGTH 150 MG)
     Route: 048
  6. TASIGNA [Suspect]
     Active Substance: NILOTINIB
     Dosage: UNK, QD
     Route: 048
  7. TASIGNA [Suspect]
     Active Substance: NILOTINIB
     Dosage: 2 DF, Q12H (STRENGTH 200 MG)
     Route: 048
  8. OMEPRAZOLE [Concomitant]
     Active Substance: OMEPRAZOLE
     Indication: Product used for unknown indication
     Dosage: 20 MG, QD
     Route: 048

REACTIONS (11)
  - Viral infection [Unknown]
  - Facial paralysis [Unknown]
  - Malignant neoplasm progression [Unknown]
  - Chronic myeloid leukaemia [Unknown]
  - Immunosuppression [Unknown]
  - Night sweats [Unknown]
  - Dizziness [Unknown]
  - Malaise [Unknown]
  - Gene mutation identification test positive [Unknown]
  - Inappropriate schedule of product administration [Unknown]
  - Investigation abnormal [Unknown]

NARRATIVE: CASE EVENT DATE: 20160208
